APPROVED DRUG PRODUCT: SOMOPHYLLIN
Active Ingredient: AMINOPHYLLINE
Strength: 300MG/5ML
Dosage Form/Route: ENEMA;RECTAL
Application: N018232 | Product #001
Applicant: FISONS CORP
Approved: Apr 2, 1982 | RLD: No | RS: No | Type: DISCN